FAERS Safety Report 25996845 (Version 2)
Quarter: 2025Q4

REPORT INFORMATION
  Report Type: Spontaneous
  Country: US (occurrence: US)
  Receive Date: 20251104
  Receipt Date: 20251124
  Transmission Date: 20260118
  Serious: Yes (Hospitalization)
  Sender: TRAVERE THERAPEUTICS
  Company Number: US-TRAVERE-2025TVT02044

PATIENT
  Age: 25 Year
  Sex: Female

DRUGS (1)
  1. FILSPARI [Suspect]
     Active Substance: SPARSENTAN
     Indication: IgA nephropathy
     Route: 048
     Dates: start: 20250529

REACTIONS (3)
  - Post procedural haemorrhage [Unknown]
  - Acute kidney injury [Unknown]
  - Proteinuria [Unknown]

NARRATIVE: CASE EVENT DATE: 20251015
